FAERS Safety Report 7399344-3 (Version None)
Quarter: 2011Q1

REPORT INFORMATION
  Report Type: 
  Country: None (occurrence: None)
  Receive Date: 20110328
  Receipt Date: 20110308
  Transmission Date: 20110831
  Serious: Yes (Other)
  Sender: FDA-Public Use
  Company Number: 2011SP010718

PATIENT
  Age: 4 Year
  Sex: Male
  Weight: 15 kg

DRUGS (4)
  1. LIDOMEX [Concomitant]
  2. RINDERON A [Concomitant]
  3. HIRUDOID SOFT (HEPARINOID) [Concomitant]
  4. CLARITIN [Suspect]
     Indication: PRURITUS
     Dosage: 5 MG, QD, PO
     Route: 048
     Dates: start: 20110305, end: 20110307

REACTIONS (4)
  - SCREAMING [None]
  - CONDITION AGGRAVATED [None]
  - PRURITUS [None]
  - DEPRESSED LEVEL OF CONSCIOUSNESS [None]
